FAERS Safety Report 12492798 (Version 4)
Quarter: 2017Q2

REPORT INFORMATION
  Report Type: Report from Study
  Country: US (occurrence: US)
  Receive Date: 20160623
  Receipt Date: 20170622
  Transmission Date: 20170830
  Serious: Yes (Other)
  Sender: FDA-Public Use
  Company Number: US-PFIZER INC-2016309630

PATIENT
  Sex: Female

DRUGS (2)
  1. PROPANOLOL HCL [Suspect]
     Active Substance: PROPRANOLOL HYDROCHLORIDE
     Dosage: 2 MG/KG, DAILY
     Route: 048
  2. PROPANOLOL HCL [Suspect]
     Active Substance: PROPRANOLOL HYDROCHLORIDE
     Indication: INFANTILE HAEMANGIOMA
     Dosage: 1 MG/KG, DAILY
     Route: 048

REACTIONS (3)
  - Bradycardia [Unknown]
  - Hypothermia [Unknown]
  - Bronchospasm [Unknown]
